FAERS Safety Report 15625899 (Version 1)
Quarter: 2018Q4

REPORT INFORMATION
  Report Type: Spontaneous
  Country: JP (occurrence: JP)
  Receive Date: 20181116
  Receipt Date: 20181116
  Transmission Date: 20190205
  Serious: Yes (Other)
  Sender: FDA-Public Use
  Company Number: JP-GLAXOSMITHKLINE-JP2018JPN206010

PATIENT
  Age: 7 Decade
  Sex: Male

DRUGS (3)
  1. ZOVIRAX [Suspect]
     Active Substance: ACYCLOVIR
     Indication: ENCEPHALITIS AUTOIMMUNE
     Dosage: UNK
     Route: 041
  2. LEVETIRACETAM. [Concomitant]
     Active Substance: LEVETIRACETAM
     Indication: ENCEPHALITIS AUTOIMMUNE
     Dosage: UNK
  3. PHENYTOIN. [Concomitant]
     Active Substance: PHENYTOIN
     Indication: ENCEPHALITIS AUTOIMMUNE
     Dosage: UNK

REACTIONS (12)
  - Acute kidney injury [Recovering/Resolving]
  - Rash [Recovering/Resolving]
  - Multiple organ dysfunction syndrome [Recovering/Resolving]
  - Urine output decreased [Recovering/Resolving]
  - Drug reaction with eosinophilia and systemic symptoms [Recovering/Resolving]
  - Erythema [Recovering/Resolving]
  - Acute respiratory distress syndrome [Recovering/Resolving]
  - Skin erosion [Recovering/Resolving]
  - Liver disorder [Recovering/Resolving]
  - Multi-organ disorder [Recovering/Resolving]
  - Pyrexia [Recovering/Resolving]
  - Lymphocyte morphology abnormal [Recovering/Resolving]
